FAERS Safety Report 19740444 (Version 1)
Quarter: 2021Q3

REPORT INFORMATION
  Report Type: Report from Study
  Country: GB (occurrence: GB)
  Receive Date: 20210824
  Receipt Date: 20210824
  Transmission Date: 20211014
  Serious: Yes (Death, Hospitalization)
  Sender: FDA-Public Use
  Company Number: GB-TEVA-2021-GB-1943709

PATIENT
  Age: 48 Year
  Sex: Female

DRUGS (40)
  1. FORTISIP [Concomitant]
     Active Substance: CARBOHYDRATES\FATTY ACIDS\MINERALS\PROTEIN\VITAMINS
  2. LANSOPRAZOLE. [Concomitant]
     Active Substance: LANSOPRAZOLE
  3. MORPHINE SULFATE. [Concomitant]
     Active Substance: MORPHINE SULFATE
  4. SALBUTAMOL [Concomitant]
     Active Substance: ALBUTEROL
     Route: 065
  5. NYSTATIN. [Concomitant]
     Active Substance: NYSTATIN
  6. DOCETAXEL. [Suspect]
     Active Substance: DOCETAXEL
     Dosage: 85 MG
     Route: 042
     Dates: start: 20160811, end: 20160831
  7. TINZAPARIN [Concomitant]
     Active Substance: TINZAPARIN
  8. ZOLEDRONIC ACID [Concomitant]
     Active Substance: ZOLEDRONIC ACID
  9. DOCETAXEL. [Suspect]
     Active Substance: DOCETAXEL
     Dosage: 100 MG
     Route: 042
     Dates: start: 20160629, end: 20160720
  10. NERATINIB [Suspect]
     Active Substance: NERATINIB
     Indication: BREAST CANCER METASTATIC
     Dosage: 240 MILLIGRAM DAILY;
     Route: 048
     Dates: start: 20191016
  11. PERTUZUMAB. [Suspect]
     Active Substance: PERTUZUMAB
     Indication: BREAST CANCER METASTATIC
     Dosage: 840 MG
     Route: 042
     Dates: start: 20160516, end: 20160516
  12. CARVEDILOL. [Concomitant]
     Active Substance: CARVEDILOL
     Dosage: 25 MILLIGRAM DAILY; 12.5 MG
     Route: 048
  13. DEXAMETHASONE. [Concomitant]
     Active Substance: DEXAMETHASONE
  14. FILGRASTIM [Concomitant]
     Active Substance: FILGRASTIM
  15. OMEPRAZOLE. [Concomitant]
     Active Substance: OMEPRAZOLE
     Dosage: 40 MILLIGRAM DAILY; 20 MG
     Route: 048
  16. TRASTUZUMAB. [Suspect]
     Active Substance: TRASTUZUMAB
     Dosage: 450 MG
     Route: 042
     Dates: start: 20160629, end: 20180524
  17. CANDESARTAN. [Concomitant]
     Active Substance: CANDESARTAN
     Dosage: 32 MILLIGRAM DAILY; 16 MG
     Route: 048
  18. IBUPROFEN. [Concomitant]
     Active Substance: IBUPROFEN
  19. ZOPICLONE [Concomitant]
     Active Substance: ZOPICLONE
  20. CAPECITABINE. [Suspect]
     Active Substance: CAPECITABINE
     Indication: BREAST CANCER METASTATIC
     Dosage: 2500 MG
     Route: 048
     Dates: start: 20191016
  21. DOCETAXEL. [Suspect]
     Active Substance: DOCETAXEL
     Indication: BREAST CANCER METASTATIC
     Dosage: 124 MG
     Route: 042
     Dates: start: 20160517, end: 20160609
  22. TRASTUZUMAB. [Suspect]
     Active Substance: TRASTUZUMAB
     Indication: BREAST CANCER METASTATIC
     Dosage: 450 MG
     Route: 041
     Dates: start: 20160516, end: 20160516
  23. AMETOP [Concomitant]
  24. BENZYDAMINE HYDROCHLORIDE [Concomitant]
     Active Substance: BENZYDAMINE HYDROCHLORIDE
  25. BUDESONIDE. [Concomitant]
     Active Substance: BUDESONIDE
  26. CETIRIZINE [Concomitant]
     Active Substance: CETIRIZINE HYDROCHLORIDE
  27. CODEINE LINCTUS [Concomitant]
     Active Substance: CHLOROFORM\CODEINE PHOSPHATE\DRIMIA MARITIMA BULB
  28. PARACETAMOL [Concomitant]
     Active Substance: ACETAMINOPHEN
  29. PERTUZUMAB. [Suspect]
     Active Substance: PERTUZUMAB
     Dosage: 840 MG
     Route: 042
     Dates: start: 20160606, end: 20180524
  30. TRASTUZUMAB. [Suspect]
     Active Substance: TRASTUZUMAB
     Dosage: 450 MG
     Route: 042
     Dates: start: 20160606, end: 20160606
  31. TRASTUZUMAB EMTANSINE [Suspect]
     Active Substance: ADO-TRASTUZUMAB EMTANSINE
     Indication: BREAST CANCER METASTATIC
     Dosage: 180 MG
     Route: 042
     Dates: start: 20180904, end: 20190830
  32. CALCICHEW D3 FORTE [Concomitant]
     Active Substance: CALCIUM\CHOLECALCIFEROL
  33. CYCLIZINE [Concomitant]
     Active Substance: CYCLIZINE
  34. NAPROXEN. [Concomitant]
     Active Substance: NAPROXEN
     Dosage: 1000 MILLIGRAM DAILY; 250 MG
     Route: 048
  35. POTASSIUM [Concomitant]
     Active Substance: POTASSIUM
  36. BISOPROLOL [Concomitant]
     Active Substance: BISOPROLOL
  37. DOMPERIDONE [Concomitant]
     Active Substance: DOMPERIDONE
  38. IRON ISOMALTOSIDE [Concomitant]
  39. LOPERAMIDE [Concomitant]
     Active Substance: LOPERAMIDE
  40. TRAMADOL. [Concomitant]
     Active Substance: TRAMADOL

REACTIONS (1)
  - Acute kidney injury [Recovered/Resolved]

NARRATIVE: CASE EVENT DATE: 20191221
